FAERS Safety Report 9234205 (Version 1)
Quarter: 2013Q2

REPORT INFORMATION
  Report Type: Report from Study
  Country: SA (occurrence: SA)
  Receive Date: 20130416
  Receipt Date: 20130416
  Transmission Date: 20140414
  Serious: Yes (Death, Other)
  Sender: FDA-Public Use
  Company Number: SA-ROCHE-1209295

PATIENT
  Sex: 0

DRUGS (8)
  1. TRETINOIN [Suspect]
     Indication: ACUTE PROMYELOCYTIC LEUKAEMIA
     Route: 065
  2. TRETINOIN [Suspect]
     Route: 065
  3. IDARUBICIN [Suspect]
     Indication: ACUTE PROMYELOCYTIC LEUKAEMIA
     Route: 042
  4. PREDNISONE [Suspect]
     Indication: ACUTE PROMYELOCYTIC LEUKAEMIA
     Route: 048
  5. 6-MERCAPTOPURINE [Suspect]
     Indication: ACUTE PROMYELOCYTIC LEUKAEMIA
     Route: 048
  6. METHOTREXATE [Suspect]
     Indication: ACUTE PROMYELOCYTIC LEUKAEMIA
     Route: 048
  7. ARSENIC TRIOXIDE [Suspect]
     Indication: ACUTE PROMYELOCYTIC LEUKAEMIA
     Route: 065
  8. ACETAZOLAMIDE [Concomitant]

REACTIONS (13)
  - Haemoptysis [Fatal]
  - Haemorrhage intracranial [Fatal]
  - Septic shock [Fatal]
  - Acute myocardial infarction [Fatal]
  - Pulmonary alveolar haemorrhage [Fatal]
  - Retinoic acid syndrome [Unknown]
  - Retinal haemorrhage [Unknown]
  - Benign intracranial hypertension [Unknown]
  - Retinal haemorrhage [Unknown]
  - Pyrexia [Unknown]
  - Weight increased [Unknown]
  - Febrile neutropenia [Unknown]
  - Colonic pseudo-obstruction [Unknown]
